FAERS Safety Report 8901991 (Version 2)
Quarter: 2012Q4

REPORT INFORMATION
  Report Type: 
  Country: US (occurrence: US)
  Receive Date: 20121109
  Receipt Date: 20121114
  Transmission Date: 20130627
  Serious: No
  Sender: FDA-Public Use
  Company Number: US-009507513-1211USA001033

PATIENT
  Sex: Male

DRUGS (2)
  1. PEG-INTRON [Suspect]
     Indication: HEPATITIS C
     Dosage: 150 Microgram, qw
     Dates: start: 201207
  2. RIBAVIRIN [Suspect]
     Route: 048

REACTIONS (3)
  - Nausea [Recovering/Resolving]
  - Drug dose omission [Unknown]
  - Product quality issue [Unknown]
